FAERS Safety Report 22124062 (Version 1)
Quarter: 2023Q1

REPORT INFORMATION
  Report Type: Spontaneous
  Country: FR (occurrence: FR)
  Receive Date: 20230322
  Receipt Date: 20230322
  Transmission Date: 20230417
  Serious: Yes (Other)
  Sender: FDA-Public Use
  Company Number: FR-ORGANON-O2301FRA002391

PATIENT
  Sex: Male
  Weight: 10.4 kg

DRUGS (1)
  1. NASONEX [Suspect]
     Active Substance: MOMETASONE FUROATE
     Dosage: 1 SPRAY IN EACH NOSTRIL AT EVENING (50 MG/DOSE)
     Route: 045
     Dates: start: 20230125, end: 20230204

REACTIONS (9)
  - Intentional self-injury [Unknown]
  - Middle ear effusion [Unknown]
  - Language disorder [Unknown]
  - Drug intolerance [Unknown]
  - Sleep disorder [Unknown]
  - Nervousness [Unknown]
  - Bite [Unknown]
  - Intercepted product prescribing error [Unknown]
  - Product prescribing issue [Unknown]
